FAERS Safety Report 18551962 (Version 2)
Quarter: 2020Q4

REPORT INFORMATION
  Report Type: Other
  Country: IT (occurrence: IT)
  Receive Date: 20201126
  Receipt Date: 20201203
  Transmission Date: 20210114
  Serious: Yes (Hospitalization)
  Sender: FDA-Public Use
  Company Number: IT-ROCHE-2700386

PATIENT
  Age: 67 Year
  Sex: Male

DRUGS (9)
  1. PANTOPRAZOLE [Concomitant]
     Active Substance: PANTOPRAZOLE
  2. MYCOPHENOLATE MOFETIL. [Suspect]
     Active Substance: MYCOPHENOLATE MOFETIL
     Indication: HYPERSENSITIVITY VASCULITIS
     Route: 065
  3. CARDIOASPIRIN [Concomitant]
     Active Substance: ASPIRIN
     Indication: DISEASE RISK FACTOR
  4. FOLINA [Concomitant]
  5. DELTACORTENE [Suspect]
     Active Substance: PREDNISONE
     Indication: VASCULITIS
     Route: 065
  6. ZYLORIC [Concomitant]
     Active Substance: ALLOPURINOL
     Indication: HYPERURICAEMIA
  7. LENDORMIN [Concomitant]
     Active Substance: BROTIZOLAM
  8. RAMIPRIL. [Concomitant]
     Active Substance: RAMIPRIL
  9. TRIATEC (ITALY) [Concomitant]
     Active Substance: RAMIPRIL
     Indication: HYPERTENSION

REACTIONS (4)
  - Chronic obstructive pulmonary disease [Unknown]
  - Emphysema [Recovering/Resolving]
  - Influenza like illness [Recovering/Resolving]
  - Coronavirus infection [Recovering/Resolving]

NARRATIVE: CASE EVENT DATE: 20200314
